FAERS Safety Report 17001688 (Version 1)
Quarter: 2019Q4

REPORT INFORMATION
  Report Type: Spontaneous
  Country: GB (occurrence: GB)
  Receive Date: 20191106
  Receipt Date: 20191106
  Transmission Date: 20200122
  Serious: Yes (Other)
  Sender: FDA-Public Use
  Company Number: GB-SA-2019SA300938

PATIENT
  Age: 40 Year
  Sex: Female
  Weight: 82 kg

DRUGS (4)
  1. FERROUS FUMARATE [Concomitant]
     Active Substance: FERROUS FUMARATE
     Dosage: 2 DF, QD
     Dates: start: 20190903
  2. CLEXANE [Suspect]
     Active Substance: ENOXAPARIN SODIUM
     Dosage: UNK UNK, UNK STRENGTH: 60MG/0.6ML
     Route: 065
     Dates: start: 20191010
  3. PIRITON [Concomitant]
     Active Substance: CHLORPHENIRAMINE MALEATE
     Dosage: 3 DF, QD TAKE ONE TABLET THREE TIMES A DAY
     Dates: start: 20191010
  4. FOLIC ACID. [Concomitant]
     Active Substance: FOLIC ACID
     Dosage: 1 DF, QD
     Dates: start: 20190319

REACTIONS (4)
  - Rash maculo-papular [Recovering/Resolving]
  - Skin texture abnormal [Unknown]
  - Hypersensitivity [Unknown]
  - Erythema [Unknown]
